FAERS Safety Report 13671860 (Version 3)
Quarter: 2019Q2

REPORT INFORMATION
  Report Type: Spontaneous
  Country: FR (occurrence: FR)
  Receive Date: 20170620
  Receipt Date: 20190408
  Transmission Date: 20190711
  Serious: Yes (Hospitalization)
  Sender: FDA-Public Use
  Company Number: FR-BIOMARINAP-FR-2017-114338

PATIENT
  Age: 3 Year
  Sex: Female
  Weight: 13.8 kg

DRUGS (11)
  1. KUVAN [Suspect]
     Active Substance: SAPROPTERIN DIHYDROCHLORIDE
     Indication: TETRAHYDROBIOPTERIN DEFICIENCY
     Dosage: 100 MG, BID
     Route: 048
     Dates: start: 201312
  2. LEDERFOLIN [Concomitant]
     Active Substance: LEUCOVORIN CALCIUM
     Indication: PHENYLKETONURIA
  3. FOLIC ACID. [Concomitant]
     Active Substance: FOLIC ACID
     Indication: PHENYLKETONURIA
  4. LEDERFOLIN [Concomitant]
     Active Substance: LEUCOVORIN CALCIUM
     Indication: TETRAHYDROBIOPTERIN DEFICIENCY
     Dosage: 15 MILLIGRAM, QD
     Dates: start: 201312
  5. OXITRIPTAN [Concomitant]
     Active Substance: OXITRIPTAN
     Dosage: UNK
     Route: 048
     Dates: start: 201312, end: 201605
  6. KUVAN [Suspect]
     Active Substance: SAPROPTERIN DIHYDROCHLORIDE
     Indication: PHENYLKETONURIA
     Dosage: 100 MILLIGRAM, QD
     Route: 048
  7. SINEMET [Suspect]
     Active Substance: CARBIDOPA\LEVODOPA
     Indication: PHENYLKETONURIA
     Dosage: 100 MG, QD
     Route: 048
     Dates: start: 201312, end: 20161127
  8. SINEMET [Suspect]
     Active Substance: CARBIDOPA\LEVODOPA
     Indication: TETRAHYDROBIOPTERIN DEFICIENCY
     Dosage: 50 MG, QID
     Route: 048
     Dates: start: 20130209, end: 20161127
  9. LEVOTONINE [Concomitant]
     Active Substance: OXITRIPTAN
     Indication: PHENYLKETONURIA
  10. LEVOTONINE [Concomitant]
     Active Substance: OXITRIPTAN
     Indication: TETRAHYDROBIOPTERIN DEFICIENCY
     Dosage: 30 MILLIGRAM, QID
     Route: 048
     Dates: start: 201605, end: 20161127
  11. OXITRIPTAN [Concomitant]
     Active Substance: OXITRIPTAN
     Indication: PHENYLKETONURIA
     Dosage: 30 MILLIGRAM, QD
     Route: 048
     Dates: start: 20161127, end: 20161128

REACTIONS (9)
  - Hypertonia [Recovered/Resolved]
  - Drooling [Recovered/Resolved]
  - Parkinsonism [Unknown]
  - Somnolence [Recovered/Resolved]
  - Extrapyramidal disorder [Recovered/Resolved]
  - Trismus [Recovered/Resolved]
  - Unresponsive to stimuli [Recovered/Resolved]
  - Salivary hypersecretion [Recovered/Resolved]
  - Off label use [Unknown]

NARRATIVE: CASE EVENT DATE: 20161128
